FAERS Safety Report 10411785 (Version 1)
Quarter: 2014Q3

REPORT INFORMATION
  Report Type: Spontaneous
  Country: US (occurrence: US)
  Receive Date: 20140827
  Receipt Date: 20140827
  Transmission Date: 20150326
  Serious: No
  Sender: FDA-Public Use
  Company Number: US-009507513-1408USA008531

PATIENT
  Age: 18 Year
  Sex: Female

DRUGS (1)
  1. IMPLANON [Suspect]
     Active Substance: ETONOGESTREL
     Indication: CONTRACEPTION
     Dosage: ON LEFT ARM
     Route: 059
     Dates: start: 201108

REACTIONS (4)
  - Device dislocation [Unknown]
  - Medical device complication [Unknown]
  - Device difficult to use [Unknown]
  - Device deployment issue [Unknown]
